FAERS Safety Report 10200291 (Version 2)
Quarter: 2014Q2

REPORT INFORMATION
  Report Type: Spontaneous
  Country: JP (occurrence: JP)
  Receive Date: 20140527
  Receipt Date: 20140527
  Transmission Date: 20141212
  Serious: Yes (Hospitalization)
  Sender: FDA-Public Use
  Company Number: JP-UCBSA-120181

PATIENT
  Age: 70 Year
  Sex: Female

DRUGS (2)
  1. NEUPRO [Suspect]
     Indication: PARKINSON^S DISEASE
     Route: 061
     Dates: start: 20140417
  2. APOMORPHINE HYDROCHLORIDE HYDRATE [Concomitant]

REACTIONS (4)
  - Parkinson^s disease [Unknown]
  - Nausea [Unknown]
  - Pyrexia [Unknown]
  - Drug administered at inappropriate site [Unknown]
